FAERS Safety Report 8489284-0 (Version None)
Quarter: 2012Q3

REPORT INFORMATION
  Report Type: 
  Country: None (occurrence: None)
  Receive Date: 20120705
  Receipt Date: 20120626
  Transmission Date: 20120928
  Serious: Yes (Other)
  Sender: FDA-Public Use
  Company Number: AU-ASTRAZENECA-2012SE43311

PATIENT
  Age: 72 Year
  Sex: Female

DRUGS (3)
  1. ARIMIDEX [Suspect]
     Route: 048
     Dates: end: 20111201
  2. TAMOXIFEN CITRATE [Suspect]
     Route: 048
  3. AROMASIN [Concomitant]

REACTIONS (3)
  - METASTATIC PAIN [None]
  - PAIN IN EXTREMITY [None]
  - MUSCULOSKELETAL STIFFNESS [None]
